FAERS Safety Report 21043091 (Version 4)
Quarter: 2022Q4

REPORT INFORMATION
  Report Type: Spontaneous
  Country: JP (occurrence: JP)
  Receive Date: 20220705
  Receipt Date: 20221212
  Transmission Date: 20230113
  Serious: Yes (Hospitalization, Other)
  Sender: FDA-Public Use
  Company Number: JP-GLAXOSMITHKLINE-JP2022JPN099408

PATIENT

DRUGS (5)
  1. BENLYSTA [Suspect]
     Active Substance: BELIMUMAB
     Indication: Systemic lupus erythematosus
     Dosage: 200 MG, WE
     Route: 058
     Dates: start: 201904, end: 20220902
  2. METHOTREXATE [Concomitant]
     Active Substance: METHOTREXATE
     Indication: Systemic lupus erythematosus
     Dosage: 2 MG, WE
     Route: 048
     Dates: start: 202106, end: 20220630
  3. PLAQUENIL TABLET (HYDROXYCHLOROQUINE) [Concomitant]
     Indication: Systemic lupus erythematosus
     Dosage: 200 MG, 1D
     Route: 048
     Dates: start: 201609
  4. FOLIC ACID [Concomitant]
     Active Substance: FOLIC ACID
     Indication: Systemic lupus erythematosus
     Dosage: 5 MG, WE
     Route: 048
     Dates: start: 202106, end: 20220630
  5. BEZAFIBRATE [Concomitant]
     Active Substance: BEZAFIBRATE
     Indication: Dyslipidaemia
     Dosage: 400 MG, 1D

REACTIONS (1)
  - Breast cancer [Recovered/Resolved]

NARRATIVE: CASE EVENT DATE: 20220602
